FAERS Safety Report 8261883-0 (Version None)
Quarter: 2012Q1

REPORT INFORMATION
  Report Type: 
  Country: None (occurrence: None)
  Receive Date: 20120321
  Receipt Date: 20120118
  Transmission Date: 20120608
  Serious: Yes (Death, Life-Threatening)
  Sender: FDA-Public Use
  Company Number: 2012SP003607

PATIENT
  Age: 60 Year
  Sex: Female

DRUGS (2)
  1. PEG-INTRON [Suspect]
     Indication: HEPATITIS C
     Dosage: QW
  2. RIBAVIRIN [Suspect]
     Indication: HEPATITIS C

REACTIONS (1)
  - CEREBRAL HAEMORRHAGE [None]
